FAERS Safety Report 15591605 (Version 1)
Quarter: 2018Q4

REPORT INFORMATION
  Report Type: Spontaneous
  Country: US (occurrence: US)
  Receive Date: 20181107
  Receipt Date: 20181107
  Transmission Date: 20190205
  Serious: Yes (Other)
  Sender: FDA-Public Use
  Company Number: US-PFIZER INC-2018446638

PATIENT
  Age: 37 Year
  Sex: Male
  Weight: 113.4 kg

DRUGS (2)
  1. LYRICA CR [Suspect]
     Active Substance: PREGABALIN
     Indication: SPINAL COLUMN STENOSIS
  2. LYRICA CR [Suspect]
     Active Substance: PREGABALIN
     Indication: INTERVERTEBRAL DISC PROTRUSION
     Dosage: 330 MG, DAILY
     Route: 048
     Dates: start: 201701

REACTIONS (2)
  - Joint dislocation [Unknown]
  - Road traffic accident [Unknown]

NARRATIVE: CASE EVENT DATE: 201807
